FAERS Safety Report 9501344 (Version 1)
Quarter: 2013Q1

REPORT INFORMATION
  Report Type: Spontaneous
  Country: US (occurrence: None)
  Receive Date: 20130225
  Receipt Date: 20130225
  Transmission Date: 20140127
  Serious: Yes (Hospitalization)
  Sender: FDA-Public Use
  Company Number: 2012-385

PATIENT
  Sex: Female

DRUGS (3)
  1. PRIALT (ZICONOTIDE) INTRATHECAL INFUSION [Suspect]
     Indication: PAIN
     Dosage: UNK MCG, ONCE/HOUR
     Route: 037
     Dates: end: 20120713
  2. FENTANYL (FENTANYL) INJECTION [Suspect]
     Dosage: UNK MCG, ONCE/HOUR
     Route: 037
  3. CLONIDINE (CLONIDINE) INJECTION [Suspect]
     Dosage: UNK MCG, ONCE/HOUR
     Route: 037

REACTIONS (1)
  - Hallucination, auditory [None]
